FAERS Safety Report 8140392-3 (Version None)
Quarter: 2012Q1

REPORT INFORMATION
  Report Type: 
  Country: None (occurrence: None)
  Receive Date: 20120216
  Receipt Date: 20120210
  Transmission Date: 20120608
  Serious: No
  Sender: FDA-Public Use
  Company Number: US-PFIZER INC-2012037061

PATIENT

DRUGS (1)
  1. LEVOTHYROXINE SODIUM [Suspect]
     Dosage: 150 UG, UNK

REACTIONS (5)
  - ABDOMINAL PAIN UPPER [None]
  - HEADACHE [None]
  - HYPOTHYROIDISM [None]
  - HYPERSENSITIVITY [None]
  - ACTIVITIES OF DAILY LIVING IMPAIRED [None]
